FAERS Safety Report 7554728-5 (Version None)
Quarter: 2011Q2

REPORT INFORMATION
  Report Type: 
  Country: None (occurrence: None)
  Receive Date: 20110617
  Receipt Date: 20110614
  Transmission Date: 20111010
  Serious: Yes (Hospitalization)
  Sender: FDA-Public Use
  Company Number: IN-PFIZER INC-2011114109

PATIENT
  Age: 40 Year
  Sex: Male

DRUGS (6)
  1. SULBACTAM [Concomitant]
     Dosage: UNK
     Dates: start: 20110428
  2. BELATACEPT [Suspect]
     Indication: RENAL TRANSPLANT
     Dosage: 400 MG, MONTHLY
     Route: 042
     Dates: start: 20070607, end: 20110401
  3. PREDNISOLONE [Suspect]
     Dosage: 10 MG, 1X/DAY
  4. CEFOPERAZONE [Concomitant]
     Dosage: UNK
     Dates: start: 20110428
  5. FLUCONAZOLE [Concomitant]
     Dosage: UNK
     Dates: start: 20110328
  6. CELLCEPT [Suspect]
     Dosage: 500 MG, 2X/DAY

REACTIONS (6)
  - OESOPHAGEAL CANDIDIASIS [None]
  - PNEUMONITIS [None]
  - ORAL CANDIDIASIS [None]
  - PYREXIA [None]
  - PANCREATITIS ACUTE [None]
  - PULMONARY TUBERCULOSIS [None]
